FAERS Safety Report 6571622-7 (Version None)
Quarter: 2010Q1

REPORT INFORMATION
  Report Type: 
  Country: None (occurrence: None)
  Receive Date: 20100205
  Receipt Date: 20100125
  Transmission Date: 20100710
  Serious: Yes (Other)
  Sender: FDA-Public Use
  Company Number: PHEH2007US09151

PATIENT
  Sex: Female

DRUGS (10)
  1. AREDIA [Suspect]
     Dosage: 90 MG, UNK
     Route: 042
     Dates: start: 20010101
  2. ZOMETA [Suspect]
     Route: 042
  3. ELAVIL [Concomitant]
     Dosage: 25 MG, QHS
  4. TAXOL [Concomitant]
     Dosage: UNK
  5. TAXOTERE [Concomitant]
  6. DECADRON                                /CAN/ [Concomitant]
     Dosage: 8 MG, BID
  7. BENADRYL ^ACHE^ [Concomitant]
     Dosage: 50 MG, UNK
  8. PEPCID [Concomitant]
  9. RADIATION THERAPY [Concomitant]
  10. TAMOXIFEN CITRATE [Concomitant]

REACTIONS (8)
  - ABSCESS DRAINAGE [None]
  - FULL BLOOD COUNT ABNORMAL [None]
  - IMPAIRED HEALING [None]
  - INFUSION SITE HAEMORRHAGE [None]
  - OEDEMA MUCOSAL [None]
  - OSTEONECROSIS [None]
  - PAIN IN JAW [None]
  - TOOTH EXTRACTION [None]
